FAERS Safety Report 10247739 (Version 3)
Quarter: 2014Q3

REPORT INFORMATION
  Report Type: Report from Study
  Country: JP (occurrence: JP)
  Receive Date: 20140619
  Receipt Date: 20140722
  Transmission Date: 20150326
  Serious: Yes (Hospitalization, Other)
  Sender: FDA-Public Use
  Company Number: JP-EISAI INC-E2020-14189-SOL-JP

PATIENT
  Age: 87 Year
  Sex: Female

DRUGS (5)
  1. ARICEPT [Suspect]
     Active Substance: DONEPEZIL HYDROCHLORIDE
     Indication: DEMENTIA ALZHEIMER^S TYPE
     Route: 048
     Dates: start: 20110114, end: 20120621
  2. ARICEPT [Suspect]
     Active Substance: DONEPEZIL HYDROCHLORIDE
     Route: 048
     Dates: start: 20120622
  3. FLUVOXAMINE [Concomitant]
     Active Substance: FLUVOXAMINE
  4. DEPROMEL [Concomitant]
     Active Substance: FLUVOXAMINE
  5. MEMARY [Concomitant]
     Active Substance: MEMANTINE HYDROCHLORIDE

REACTIONS (2)
  - Delirium [Recovering/Resolving]
  - Compression fracture [Recovered/Resolved]

NARRATIVE: CASE EVENT DATE: 201403
